FAERS Safety Report 8118424-8 (Version None)
Quarter: 2012Q1

REPORT INFORMATION
  Report Type: 
  Country: None (occurrence: None)
  Receive Date: 20120207
  Receipt Date: 20120130
  Transmission Date: 20120608
  Serious: Yes (Hospitalization, Other)
  Sender: FDA-Public Use
  Company Number: JP-JNJFOC-20120108767

PATIENT
  Age: 43 Year
  Sex: Female

DRUGS (4)
  1. LEVOTOMIN [Concomitant]
     Route: 048
  2. CLONAZEPAM [Concomitant]
     Route: 048
  3. AMOBAN [Concomitant]
     Route: 048
  4. RISPERDAL CONSTA [Suspect]
     Indication: SCHIZOPHRENIA
     Route: 030
     Dates: start: 20110905, end: 20111212

REACTIONS (9)
  - RENAL FAILURE ACUTE [None]
  - GAIT DISTURBANCE [None]
  - NEUROLEPTIC MALIGNANT SYNDROME [None]
  - DECREASED APPETITE [None]
  - MULTI-ORGAN FAILURE [None]
  - INAPPROPRIATE SCHEDULE OF DRUG ADMINISTRATION [None]
  - URINARY RETENTION [None]
  - DEHYDRATION [None]
  - INCORRECT ROUTE OF DRUG ADMINISTRATION [None]
